FAERS Safety Report 6850046-9 (Version None)
Quarter: 2010Q3

REPORT INFORMATION
  Report Type: 
  Country: None (occurrence: None)
  Receive Date: 20100716
  Receipt Date: 20071009
  Transmission Date: 20110219
  Serious: No
  Sender: FDA-Public Use
  Company Number: US-PFIZER INC-2007085554

PATIENT
  Sex: Female
  Weight: 42.3 kg

DRUGS (2)
  1. CHANTIX [Suspect]
     Indication: SMOKING CESSATION THERAPY
     Route: 048
     Dates: start: 20070927, end: 20071007
  2. PREVACID [Concomitant]
     Indication: GASTRIC ULCER

REACTIONS (1)
  - NAUSEA [None]
